FAERS Safety Report 4702201-1 (Version None)
Quarter: 2005Q2

REPORT INFORMATION
  Report Type: 
  Country: None (occurrence: None)
  Receive Date: 20050627
  Receipt Date: 20050614
  Transmission Date: 20051028
  Serious: Yes (Disabling, Other)
  Sender: FDA-Public Use
  Company Number: 2005054934

PATIENT
  Age: 71 Year
  Sex: Male

DRUGS (3)
  1. VIAGRA [Suspect]
     Indication: ILL-DEFINED DISORDER
     Dosage: (50 MG, AS NECESSARY), ORAL
     Route: 048
  2. TERAZOSIN HYDROCHLORIDE [Concomitant]
  3. ZOLPIDEM TARTRATE [Concomitant]

REACTIONS (8)
  - ARTHROPATHY [None]
  - DIZZINESS [None]
  - EYE HAEMORRHAGE [None]
  - FLUSHING [None]
  - HEADACHE [None]
  - INFLAMMATION [None]
  - NAUSEA [None]
  - VISUAL DISTURBANCE [None]
